FAERS Safety Report 4347354-2 (Version None)
Quarter: 2004Q1

REPORT INFORMATION
  Report Type: 
  Country: None (occurrence: None)
  Receive Date: 20040329
  Receipt Date: 20031230
  Transmission Date: 20041129
  Serious: No
  Sender: FDA-Public Use
  Company Number: USA031255576

PATIENT
  Age: 10 Year
  Sex: Female
  Weight: 42 kg

DRUGS (2)
  1. STRATTERA [Suspect]
     Indication: ATTENTION DEFICIT/HYPERACTIVITY DISORDER
     Dosage: 25 MG/2 DAY
     Dates: start: 20031101
  2. RITALIN [Concomitant]

REACTIONS (4)
  - DRUG INEFFECTIVE [None]
  - DYSPEPSIA [None]
  - HEADACHE [None]
  - PRESCRIBED OVERDOSE [None]
